FAERS Safety Report 5955840-4 (Version None)
Quarter: 2008Q4

REPORT INFORMATION
  Report Type: 
  Country: None (occurrence: None)
  Receive Date: 20081117
  Receipt Date: 20081106
  Transmission Date: 20090506
  Serious: Yes (Other)
  Sender: FDA-Public Use
  Company Number: NL-PFIZER INC-2008094490

PATIENT
  Sex: Female
  Weight: 64 kg

DRUGS (3)
  1. XANAX [Suspect]
     Indication: STRESS
     Dosage: TEXT:EVERY DAY
     Route: 048
     Dates: start: 20080929, end: 20080930
  2. CLOMIPRAMINE HCL [Suspect]
     Indication: DEPRESSED MOOD
     Route: 048
     Dates: start: 20080929, end: 20080930
  3. OXAZEPAM [Concomitant]

REACTIONS (2)
  - RESTLESSNESS [None]
  - SUICIDAL IDEATION [None]
